FAERS Safety Report 4626023-5 (Version None)
Quarter: 2005Q2

REPORT INFORMATION
  Report Type: 
  Country: None (occurrence: None)
  Receive Date: 20050404
  Receipt Date: 20050321
  Transmission Date: 20051028
  Serious: Yes (Other)
  Sender: FDA-Public Use
  Company Number: DE-JNJFOC-20050305794

PATIENT
  Age: 31 Year
  Sex: Male

DRUGS (1)
  1. CONCERTA [Suspect]
     Indication: DRUG USE FOR UNKNOWN INDICATION
     Route: 049

REACTIONS (6)
  - DISTURBANCE IN ATTENTION [None]
  - HYPERTENSION [None]
  - PERICARDITIS [None]
  - PLEURAL EFFUSION [None]
  - RESTLESSNESS [None]
  - SOMNOLENCE [None]
